FAERS Safety Report 9911576 (Version 1)
Quarter: 2014Q1

REPORT INFORMATION
  Report Type: Spontaneous
  Country: US (occurrence: US)
  Receive Date: 20140219
  Receipt Date: 20140219
  Transmission Date: 20141002
  Serious: Yes (Hospitalization)
  Sender: FDA-Public Use
  Company Number: PHHY2014US017345

PATIENT
  Age: 78 Year
  Sex: Male

DRUGS (5)
  1. AMIODARONE [Suspect]
     Indication: ATRIAL FIBRILLATION
  2. METOPROLOL [Concomitant]
  3. SIMVASTATIN [Concomitant]
  4. OMEPRAZOLE [Concomitant]
  5. TAMSULOSIN [Concomitant]

REACTIONS (8)
  - Myxoedema coma [Recovering/Resolving]
  - Confusional state [Recovering/Resolving]
  - Hypotension [Recovering/Resolving]
  - Hypothermia [Recovering/Resolving]
  - Oedema peripheral [Recovering/Resolving]
  - Hyporeflexia [Unknown]
  - Cardiac arrest [Unknown]
  - Ascites [Recovering/Resolving]
